FAERS Safety Report 16710170 (Version 2)
Quarter: 2019Q3

REPORT INFORMATION
  Report Type: Report from Study
  Country: GR (occurrence: GR)
  Receive Date: 20190816
  Receipt Date: 20190821
  Transmission Date: 20191004
  Serious: Yes (Other)
  Sender: FDA-Public Use
  Company Number: GR-PFIZER INC-2019345783

PATIENT

DRUGS (2)
  1. DRUG, UNSPECIFIED [Suspect]
     Active Substance: UNSPECIFIED INGREDIENT
     Dosage: 10 MG/KG, 1X/DAY
     Route: 058
  2. HYDROXYUREA. [Concomitant]
     Active Substance: HYDROXYUREA
     Indication: PROPHYLAXIS
     Dosage: 10 MG/KG, 1X/DAY

REACTIONS (5)
  - Hyperleukocytosis [Unknown]
  - Bone pain [Unknown]
  - Splenomegaly [Unknown]
  - Pyrexia [Unknown]
  - Thrombocytopenia [Unknown]
